FAERS Safety Report 16771450 (Version 1)
Quarter: 2019Q3

REPORT INFORMATION
  Report Type: Spontaneous
  Country: NO (occurrence: NO)
  Receive Date: 20190904
  Receipt Date: 20190904
  Transmission Date: 20191005
  Serious: Yes (Hospitalization)
  Sender: FDA-Public Use
  Company Number: NO-PFIZER INC-2019378925

PATIENT
  Age: 66 Year
  Sex: Male

DRUGS (1)
  1. CELEBRA [Suspect]
     Active Substance: CELECOXIB
     Indication: ARTHRALGIA
     Dosage: 200 MG 1X2
     Route: 048
     Dates: start: 20190612, end: 20190801

REACTIONS (4)
  - Hepatic enzyme increased [Recovering/Resolving]
  - Platelet count decreased [Recovering/Resolving]
  - Hepatitis [Recovering/Resolving]
  - International normalised ratio increased [Recovering/Resolving]

NARRATIVE: CASE EVENT DATE: 20190731
